FAERS Safety Report 22243105 (Version 4)
Quarter: 2025Q2

REPORT INFORMATION
  Report Type: Spontaneous
  Country: US (occurrence: US)
  Receive Date: 20230424
  Receipt Date: 20250421
  Transmission Date: 20250717
  Serious: No
  Sender: PFIZER
  Company Number: US-PFIZER INC-202300151597

PATIENT
  Age: 29 Year
  Sex: Female

DRUGS (5)
  1. CYTOMEL [Suspect]
     Active Substance: LIOTHYRONINE SODIUM
     Indication: Hypothyroidism
     Dosage: 5 UG, 2X/DAY
     Dates: start: 200412, end: 2005
  2. CYTOMEL [Suspect]
     Active Substance: LIOTHYRONINE SODIUM
     Dosage: 10 MCG PER DAY
     Dates: start: 2005, end: 202404
  3. LEVOXYL [Concomitant]
     Active Substance: LEVOTHYROXINE SODIUM
     Dates: start: 2004
  4. TIROSINT [Concomitant]
     Active Substance: LEVOTHYROXINE SODIUM
     Dates: start: 201304
  5. TIROSINT [Concomitant]
     Active Substance: LEVOTHYROXINE SODIUM
     Dosage: 150 UG, DAILY

REACTIONS (7)
  - Off label use [Unknown]
  - Bradykinesia [Unknown]
  - Feeling cold [Unknown]
  - Feeding disorder [Unknown]
  - Exercise tolerance decreased [Unknown]
  - Abdominal distension [Recovered/Resolved]
  - Abdominal discomfort [Unknown]

NARRATIVE: CASE EVENT DATE: 20041201
